FAERS Safety Report 8213632-X (Version None)
Quarter: 2012Q1

REPORT INFORMATION
  Report Type: 
  Country: None (occurrence: None)
  Receive Date: 20120315
  Receipt Date: 20120305
  Transmission Date: 20120608
  Serious: Yes (Other)
  Sender: FDA-Public Use
  Company Number: JP-ASTRAZENECA-2012SE05750

PATIENT
  Age: 19974 Day
  Sex: Male
  Weight: 40 kg

DRUGS (9)
  1. DEPAS [Concomitant]
     Indication: SCHIZOPHRENIA
     Route: 048
     Dates: end: 20120102
  2. SEROQUEL [Suspect]
     Indication: SCHIZOPHRENIA
     Route: 048
     Dates: start: 20090101
  3. SEROQUEL [Suspect]
     Route: 048
     Dates: start: 20110325, end: 20120102
  4. SENNOSIDE [Concomitant]
     Indication: CONSTIPATION
     Route: 048
     Dates: end: 20120102
  5. TEGRETOL [Suspect]
     Indication: SCHIZOPHRENIA
     Route: 048
     Dates: start: 20100222, end: 20120102
  6. RISPERDAL [Suspect]
     Indication: SCHIZOPHRENIA
     Route: 048
     Dates: start: 20070119, end: 20120102
  7. GOODMIN [Concomitant]
     Indication: INSOMNIA
     Route: 048
     Dates: end: 20120102
  8. MAGNESIUM OXIDE [Concomitant]
     Indication: CONSTIPATION
     Route: 048
     Dates: end: 20120102
  9. ROHYPNOL [Concomitant]
     Indication: INSOMNIA
     Route: 048
     Dates: end: 20120102

REACTIONS (1)
  - LIVER DISORDER [None]
